FAERS Safety Report 8100147-2 (Version None)
Quarter: 2012Q1

REPORT INFORMATION
  Report Type: 
  Country: None (occurrence: None)
  Receive Date: 20120129
  Receipt Date: 20111128
  Transmission Date: 20120608
  Serious: No
  Sender: FDA-Public Use
  Company Number: US-ABBOTT-11P-163-0879061-00

PATIENT
  Age: 70 Year
  Sex: Female

DRUGS (15)
  1. MULTI-VITAMINS [Concomitant]
     Indication: PRODUCT USED FOR UNKNOWN INDICATION
  2. CALCIUM [Concomitant]
     Indication: SUPPLEMENTATION THERAPY
  3. BENADRYL [Concomitant]
     Indication: INSOMNIA
     Dosage: QHS
  4. BENADRYL [Concomitant]
     Indication: UPPER-AIRWAY COUGH SYNDROME
  5. HUMIRA [Suspect]
     Indication: PSORIASIS
     Dates: start: 20110806
  6. SIMVASTATIN [Concomitant]
     Indication: BLOOD CHOLESTEROL
  7. LOSARTAN POTASSIUM [Concomitant]
     Indication: HYPERTENSION
  8. CLARITIN [Concomitant]
     Indication: HYPERSENSITIVITY
  9. AMLODIPINE [Concomitant]
     Indication: PRODUCT USED FOR UNKNOWN INDICATION
  10. TRIAMINIC/HCTZ [Concomitant]
     Indication: BLOOD PRESSURE
     Dosage: 27.5-24 MG
  11. PRILOSEC [Concomitant]
     Indication: GASTROOESOPHAGEAL REFLUX DISEASE
  12. CINNAMON [Concomitant]
     Indication: PRODUCT USED FOR UNKNOWN INDICATION
  13. GLUCOSAMINE [Concomitant]
     Indication: PRODUCT USED FOR UNKNOWN INDICATION
  14. FENOFIBRATE [Concomitant]
     Indication: PRODUCT USED FOR UNKNOWN INDICATION
  15. ASPIRIN [Concomitant]
     Indication: PROPHYLAXIS

REACTIONS (4)
  - NODULE [None]
  - OEDEMA PERIPHERAL [None]
  - CELLULITIS [None]
  - ERYTHEMA [None]
